FAERS Safety Report 14025814 (Version 2)
Quarter: 2017Q4

REPORT INFORMATION
  Report Type: Spontaneous
  Country: US (occurrence: US)
  Receive Date: 20170929
  Receipt Date: 20171019
  Transmission Date: 20180321
  Serious: Yes (Other)
  Sender: FDA-Public Use
  Company Number: US-PFIZER INC-2017415680

PATIENT
  Age: 17 Year
  Sex: Female

DRUGS (1)
  1. FOSCARNET SODIUM. [Suspect]
     Active Substance: FOSCARNET SODIUM
     Indication: CYTOMEGALOVIRUS INFECTION
     Dosage: UNK
     Dates: start: 201709, end: 201709

REACTIONS (3)
  - Cytomegalovirus infection [Unknown]
  - Drug ineffective [Unknown]
  - Cytomegalovirus chorioretinitis [Unknown]
